FAERS Safety Report 17550465 (Version 2)
Quarter: 2020Q1

REPORT INFORMATION
  Report Type: Spontaneous
  Country: BR (occurrence: BR)
  Receive Date: 20200317
  Receipt Date: 20200318
  Transmission Date: 20200409
  Serious: No
  Sender: FDA-Public Use
  Company Number: BR-PFIZER INC-2020114691

PATIENT
  Sex: Female

DRUGS (1)
  1. FIBRASE [Suspect]
     Active Substance: CHLORAMPHENICOL
     Indication: WOUND
     Dosage: UNK

REACTIONS (1)
  - No adverse event [Unknown]
